FAERS Safety Report 7608061-3 (Version None)
Quarter: 2011Q3

REPORT INFORMATION
  Report Type: 
  Country: None (occurrence: None)
  Receive Date: 20110714
  Receipt Date: 20110707
  Transmission Date: 20111222
  Serious: Yes (Other)
  Sender: FDA-Public Use
  Company Number: BR-JNJFOC-20110702974

PATIENT
  Age: 38 Year
  Sex: Male
  Weight: 82 kg

DRUGS (1)
  1. ACETAMINOPHEN AND CODEINE PHOSPHATE [Suspect]
     Indication: BACK PAIN
     Route: 048
     Dates: start: 20110705

REACTIONS (4)
  - DIARRHOEA [None]
  - PRURITUS GENERALISED [None]
  - BLOOD PRESSURE INCREASED [None]
  - DIZZINESS [None]
